FAERS Safety Report 6506821-3 (Version None)
Quarter: 2009Q4

REPORT INFORMATION
  Report Type: 
  Country: None (occurrence: None)
  Receive Date: 20091221
  Receipt Date: 20091208
  Transmission Date: 20100525
  Serious: No
  Sender: FDA-Public Use
  Company Number: US-ROXANE LABORATORIES, INC.-2009-RO-01276RO

PATIENT
  Sex: Male

DRUGS (2)
  1. LITHIUM CARBONATE [Suspect]
     Indication: AUTISM SPECTRUM DISORDER
     Dosage: 600 MG
     Dates: end: 20090701
  2. LITHIUM CARBONATE [Suspect]
     Indication: ATTENTION DEFICIT/HYPERACTIVITY DISORDER

REACTIONS (3)
  - GAIT DISTURBANCE [None]
  - GRIMACING [None]
  - STEREOTYPY [None]
